FAERS Safety Report 25152256 (Version 1)
Quarter: 2025Q2

REPORT INFORMATION
  Report Type: Spontaneous
  Country: US (occurrence: US)
  Receive Date: 20250402
  Receipt Date: 20250402
  Transmission Date: 20250716
  Serious: Yes (Hospitalization, Other)
  Sender: ELI LILLY AND CO
  Company Number: US-ELI_LILLY_AND_COMPANY-US202503020632

PATIENT
  Age: 63 Year

DRUGS (1)
  1. ZEPBOUND [Suspect]
     Active Substance: TIRZEPATIDE
     Indication: Weight control
     Route: 058
     Dates: start: 20250316

REACTIONS (8)
  - Muscle spasms [Recovering/Resolving]
  - Vomiting projectile [Recovering/Resolving]
  - Decreased appetite [Recovering/Resolving]
  - Flatulence [Recovering/Resolving]
  - Eructation [Recovering/Resolving]
  - Diarrhoea [Recovering/Resolving]
  - Impaired gastric emptying [Unknown]
  - Abdominal distension [Recovering/Resolving]

NARRATIVE: CASE EVENT DATE: 20250317
